FAERS Safety Report 25372774 (Version 3)
Quarter: 2025Q2

REPORT INFORMATION
  Report Type: Spontaneous
  Country: JP (occurrence: JP)
  Receive Date: 20250529
  Receipt Date: 20250613
  Transmission Date: 20250716
  Serious: Yes (Hospitalization, Other)
  Sender: ROCHE
  Company Number: None

PATIENT
  Age: 51 Year
  Sex: Male

DRUGS (9)
  1. MYCOPHENOLATE MOFETIL [Suspect]
     Active Substance: MYCOPHENOLATE MOFETIL
     Indication: Chronic graft versus host disease in liver
     Route: 048
     Dates: start: 2022, end: 2024
  2. CYCLOSPORINE [Suspect]
     Active Substance: CYCLOSPORINE
     Indication: Chronic graft versus host disease in liver
     Route: 065
  3. CYCLOSPORINE [Suspect]
     Active Substance: CYCLOSPORINE
     Route: 065
  4. CYCLOSPORINE [Suspect]
     Active Substance: CYCLOSPORINE
     Route: 065
  5. CYCLOSPORINE [Suspect]
     Active Substance: CYCLOSPORINE
     Route: 065
  6. PREDNISOLONE [Suspect]
     Active Substance: PREDNISOLONE
     Indication: Chronic graft versus host disease in eye
     Route: 065
  7. PREDNISOLONE [Suspect]
     Active Substance: PREDNISOLONE
     Route: 065
  8. PREDNISOLONE [Suspect]
     Active Substance: PREDNISOLONE
     Route: 065
  9. PREDNISOLONE [Suspect]
     Active Substance: PREDNISOLONE
     Route: 065

REACTIONS (4)
  - Pneumonia bacterial [Unknown]
  - COVID-19 [Unknown]
  - Blood bilirubin decreased [Unknown]
  - Renal impairment [Unknown]

NARRATIVE: CASE EVENT DATE: 20220101
